FAERS Safety Report 5627006-9 (Version None)
Quarter: 2008Q1

REPORT INFORMATION
  Report Type: 
  Country: None (occurrence: None)
  Receive Date: 20080117
  Receipt Date: 20070924
  Transmission Date: 20080703
  Serious: Yes (Hospitalization)
  Sender: FDA-Public Use
  Company Number: E2020-01650-SPO-US

PATIENT
  Age: 80 Year
  Sex: Female

DRUGS (6)
  1. ARICEPT [Suspect]
     Indication: DEMENTIA
     Dosage: 10 MG, 1 IN 1 D, ORAL
     Route: 048
     Dates: start: 20070828, end: 20070828
  2. NAMENDA [Suspect]
     Indication: DEMENTIA
     Dosage: 5 MG, 1 IN 1 D, ORAL ; 10 MG, 2 IN 1 D, ORAL ; 15 MG, 1 IN 1 D, ORAL ; 20 MG, 2 IN 1 D, ORAL
     Route: 048
     Dates: start: 20070805, end: 20070811
  3. NAMENDA [Suspect]
     Indication: DEMENTIA
     Dosage: 5 MG, 1 IN 1 D, ORAL ; 10 MG, 2 IN 1 D, ORAL ; 15 MG, 1 IN 1 D, ORAL ; 20 MG, 2 IN 1 D, ORAL
     Route: 048
     Dates: start: 20070812, end: 20070818
  4. NAMENDA [Suspect]
     Indication: DEMENTIA
     Dosage: 5 MG, 1 IN 1 D, ORAL ; 10 MG, 2 IN 1 D, ORAL ; 15 MG, 1 IN 1 D, ORAL ; 20 MG, 2 IN 1 D, ORAL
     Route: 048
     Dates: start: 20070819, end: 20070825
  5. NAMENDA [Suspect]
     Indication: DEMENTIA
     Dosage: 5 MG, 1 IN 1 D, ORAL ; 10 MG, 2 IN 1 D, ORAL ; 15 MG, 1 IN 1 D, ORAL ; 20 MG, 2 IN 1 D, ORAL
     Route: 048
     Dates: start: 20070826, end: 20070828
  6. NAMENDA [Suspect]
     Indication: DEMENTIA
     Dosage: 5 MG, 1 IN 1 D, ORAL ; 10 MG, 2 IN 1 D, ORAL ; 15 MG, 1 IN 1 D, ORAL ; 20 MG, 2 IN 1 D, ORAL
     Route: 048
     Dates: start: 20070830

REACTIONS (1)
  - SOMNOLENCE [None]
